FAERS Safety Report 6520936-5 (Version None)
Quarter: 2009Q4

REPORT INFORMATION
  Report Type: 
  Country: None (occurrence: None)
  Receive Date: 20091229
  Receipt Date: 20091216
  Transmission Date: 20100525
  Serious: Yes (Hospitalization, Other)
  Sender: FDA-Public Use
  Company Number: AR-AMGEN-US381865

PATIENT
  Sex: Female

DRUGS (4)
  1. ENBREL [Suspect]
     Indication: RHEUMATOID ARTHRITIS
     Dosage: 50 MG ONCE EVERY 15 DAYS
     Route: 058
     Dates: start: 20070727, end: 20091111
  2. ENBREL [Suspect]
     Dosage: DOSE UNSPECIFIED
     Route: 058
     Dates: start: 20091214
  3. BEZAFIBRATE [Concomitant]
     Indication: HYPERLIPIDAEMIA
     Route: 065
     Dates: start: 20070101
  4. URSODEOXYCHOLIC ACID [Concomitant]
     Route: 065
     Dates: start: 20070101

REACTIONS (2)
  - ANAEMIA [None]
  - ASCITES [None]
